FAERS Safety Report 11678970 (Version 2)
Quarter: 2015Q4

REPORT INFORMATION
  Report Type: Report from Study
  Country: None (occurrence: US)
  Receive Date: 20151028
  Receipt Date: 20151111
  Transmission Date: 20160304
  Serious: Yes (Hospitalization)
  Sender: FDA-Public Use
  Company Number: US-DEP_12855_2015

PATIENT
  Age: 12 Year
  Sex: Female
  Weight: 48.9 kg

DRUGS (66)
  1. DULCOLAX-BISACODYL [Concomitant]
     Indication: CONSTIPATION PROPHYLAXIS
     Route: 054
     Dates: start: 20151010, end: 20151016
  2. MORPHINE PCA [Concomitant]
     Indication: PROCEDURAL PAIN
     Dosage: PCA 1MG/ML, PRN (29 DELIVERIES)
     Route: 040
     Dates: start: 20151014, end: 20151015
  3. OFIRMEV- ACETAMINOPHEN [Concomitant]
     Indication: PROCEDURAL PAIN
     Route: 042
     Dates: start: 20151008, end: 20151011
  4. NEURONTIN- GABAPENTIN [Concomitant]
     Indication: BACK PAIN
     Route: 048
     Dates: start: 201506, end: 20151009
  5. ZOFRAN- ONDANSETRON [Concomitant]
     Indication: PROCEDURAL NAUSEA
     Route: 042
     Dates: start: 20151008, end: 20151019
  6. ASTRAMORPH PF- MORPHINE [Concomitant]
     Dosage: ONCE
     Route: 042
     Dates: start: 20151008, end: 20151008
  7. DEXTROSE, SODIUM CHLORIDE, AND POTASSIUM CHLORIDE [Concomitant]
     Active Substance: DEXTROSE\POTASSIUM CHLORIDE\SODIUM CHLORIDE
     Indication: CATHETER MANAGEMENT
     Dosage: 0.9% FLUSH, PRN
     Route: 042
     Dates: start: 20151008, end: 20151019
  8. DIPRIVAN- PROPOFOL [Concomitant]
     Dosage: ONCE
     Route: 042
     Dates: start: 20151014, end: 20151014
  9. DILAUDID- HYDROMORPHONE [Concomitant]
     Dosage: PCA 0.2MG/ML, 0.15MG/HR
     Route: 040
     Dates: start: 20151009, end: 20151010
  10. DICLOFENAC POTASSIUM ORAL SOLUTION [Suspect]
     Active Substance: DICLOFENAC POTASSIUM
     Indication: PROCEDURAL PAIN
     Dosage: THREE TOTAL DOSES ADMINISTERED
     Route: 048
     Dates: start: 20151012, end: 20151012
  11. PLASMALYTE-ELECTROLYE-A [Concomitant]
     Indication: PROPHYLAXIS AGAINST DEHYDRATION
     Route: 042
     Dates: start: 20151014, end: 20151014
  12. AMOXICILLIN. [Concomitant]
     Active Substance: AMOXICILLIN
     Indication: PROPHYLAXIS
     Dosage: ONCE
     Route: 048
     Dates: start: 20151019
  13. SUBLIMAZE- FENTANYL [Concomitant]
     Indication: PROCEDURAL PAIN
     Dosage: ONCE
     Route: 042
     Dates: start: 20151014, end: 20151014
  14. BENADRYL- DIPHENHYDRAMINE [Concomitant]
     Indication: PROPHYLAXIS
     Dosage: PRN
     Route: 048
     Dates: start: 20151008, end: 20151018
  15. HYCET- HYDROCODONE-ACETAMINOPHEN [Concomitant]
     Indication: PROCEDURAL PAIN
     Dosage: 108 MG/5 ML
     Route: 048
     Dates: start: 20151013, end: 20151014
  16. VALIUM- DIAZEPAM [Concomitant]
     Dosage: PRN
     Route: 048
     Dates: start: 20151016, end: 20151019
  17. RECOMBINANT- THROMBIN [Concomitant]
     Indication: PROPHYLAXIS
     Dosage: 5,000U TOPICAL SOLUTION, 1 APPLICATION, ONCE
     Route: 061
     Dates: start: 20151014, end: 20151014
  18. DILAUDID- HYDROMORPHONE [Concomitant]
     Indication: PROCEDURAL PAIN
     Dosage: PCA 0.2 MG/ML, PRN (79 DELIVERIES)
     Route: 040
     Dates: start: 20151009, end: 20151010
  19. DIAZEPAM. [Concomitant]
     Active Substance: DIAZEPAM
     Indication: PROCEDURAL PAIN
     Route: 048
     Dates: start: 20151019
  20. NEURONTIN- GABAPENTIN [Concomitant]
     Route: 048
     Dates: start: 20151009, end: 20151019
  21. DOLOPHINE- METHADONE [Concomitant]
     Indication: PROCEDURAL PAIN
     Dosage: ONCE
     Route: 042
     Dates: start: 20151008, end: 20151008
  22. VALIUM- DIAZEPAM [Concomitant]
     Dosage: ONCE
     Route: 042
     Dates: start: 20151014, end: 20151014
  23. ROXICODONE- OXYCODONE [Concomitant]
     Dosage: 1 MG/ML, PRN
     Route: 048
     Dates: start: 20151010, end: 20151012
  24. DIPRIVAN- PROPOFOL [Concomitant]
     Dosage: ONCE
     Route: 042
     Dates: start: 20151008, end: 20151008
  25. TORADOL [Suspect]
     Active Substance: KETOROLAC TROMETHAMINE
     Indication: PROCEDURAL PAIN
     Dosage: ONCE
     Route: 042
     Dates: start: 20151014, end: 20151014
  26. ACETAMINOPHEN. [Concomitant]
     Active Substance: ACETAMINOPHEN
     Dosage: PRN
     Route: 048
     Dates: start: 20151015, end: 20151019
  27. ELAVIL- AMITRIPTYLINE [Concomitant]
     Indication: BACK PAIN
     Dosage: EVENING
     Route: 048
     Dates: start: 201506
  28. OXYCODONE [Concomitant]
     Active Substance: OXYCODONE
     Indication: PROCEDURAL PAIN
     Dosage: PRN
     Route: 048
     Dates: start: 20151019
  29. MORPHINE PCA [Concomitant]
     Dosage: PCA 1MG/ML
     Route: 042
     Dates: start: 20151014, end: 20151015
  30. GLYCOLAX/MIRALAX- PEG 3350 [Concomitant]
     Indication: CONSTIPATION PROPHYLAXIS
     Dosage: PACKET- 17 G
     Route: 048
     Dates: start: 20151009
  31. TORADOL [Suspect]
     Active Substance: KETOROLAC TROMETHAMINE
     Route: 042
     Dates: start: 20151008, end: 20151009
  32. TORADOL [Suspect]
     Active Substance: KETOROLAC TROMETHAMINE
     Route: 042
     Dates: start: 20151009, end: 20151012
  33. ACETAMINOPHEN. [Concomitant]
     Active Substance: ACETAMINOPHEN
     Dosage: 325 MG/10.15 ML, PRN
     Route: 048
     Dates: start: 20151011, end: 20151012
  34. SUFENTANIL IN DEXTROSE 5% 50 ML DRIP (SUFENTA) [Concomitant]
     Indication: PROCEDURAL PAIN
     Dosage: 50 ML DRIP, ONCE
     Route: 041
     Dates: start: 20151008, end: 20151008
  35. NEURONTIN- GABAPENTIN [Concomitant]
     Indication: PROCEDURAL PAIN
     Dosage: ONCE
     Route: 048
     Dates: start: 20151008, end: 20151008
  36. ZEMURON- ROCURONIUM [Concomitant]
     Indication: ANAESTHESIA
     Dosage: ONCE
     Route: 042
     Dates: start: 20151008, end: 20151008
  37. ASTRAMORPH PF- MORPHINE [Concomitant]
     Indication: PROCEDURAL PAIN
     Dosage: PRN, ONCE
     Route: 042
     Dates: start: 20151014, end: 20151014
  38. DECADRON- DEXAMETHASONE [Concomitant]
     Indication: PROCEDURAL PAIN
     Dosage: ONCE
     Route: 042
     Dates: start: 20151014, end: 20151014
  39. TRANEXAMIC ACID. [Concomitant]
     Active Substance: TRANEXAMIC ACID
     Indication: HAEMORRHAGE PROPHYLAXIS
     Dosage: ONCE
     Route: 042
     Dates: start: 20151008, end: 20151008
  40. ALBUMIN HUMAN 5% INJECTION [Concomitant]
     Indication: PROPHYLAXIS
     Dosage: ONCE
     Route: 042
     Dates: start: 20151008, end: 20151008
  41. NARCAN- NALOXONE [Concomitant]
     Indication: PRURITUS
     Dosage: 50 MCG/ML IN DEXTROSE 5%, 0.9 ML/HR
     Route: 041
     Dates: start: 20151009, end: 20151011
  42. ANCEF- CEFAZOLIN [Concomitant]
     Indication: ANTIBIOTIC PROPHYLAXIS
     Route: 042
     Dates: start: 20151014, end: 20151019
  43. BETADINE TOPICAL SOLUTION 3%- POVIDONE-IODINE [Concomitant]
     Dosage: 1 APPLICATION, ONCE
     Route: 061
     Dates: start: 20151008, end: 20151008
  44. PLASMALYTE-ELECTROLYE-A [Concomitant]
     Dosage: ONCE
     Route: 042
     Dates: start: 20151008, end: 20151008
  45. VALIUM- DIAZEPAM [Concomitant]
     Indication: PROCEDURAL PAIN
     Route: 048
     Dates: start: 20151011, end: 20151015
  46. DIPRIVAN- PROPOFOL [Concomitant]
     Indication: ANAESTHESIA
     Dosage: OSM DRIP, ONCE
     Route: 041
     Dates: start: 20151014, end: 20151014
  47. SUFENTA- SUFENTANIL [Concomitant]
     Indication: ANAESTHESIA
     Dosage: ONCE
     Route: 042
     Dates: start: 20151008, end: 20151008
  48. ANCEF- CEFAZOLIN [Concomitant]
     Dosage: ONCE
     Route: 061
     Dates: start: 20151008, end: 20151008
  49. ANCEF- CEFAZOLIN [Concomitant]
     Dosage: ONCE
     Route: 061
     Dates: start: 20151014, end: 20151014
  50. VERSED- MIDAZOLAM [Concomitant]
     Dosage: ONCE
     Route: 048
     Dates: start: 20151008, end: 20151008
  51. VANCOCIN- VANCOMYCIN [Concomitant]
     Indication: ANTIBIOTIC PROPHYLAXIS
     Dosage: TOPICAL POWDER, 1 APPLICATION, ONCE
     Route: 061
     Dates: start: 20151008, end: 20151008
  52. VANCOCIN- VANCOMYCIN [Concomitant]
     Dosage: TOPICAL POWDER, 1 APPLICATION, ONCE
     Route: 061
     Dates: start: 20151014, end: 20151014
  53. NEBCIN PF- TOBRAMYCIN [Concomitant]
     Indication: ANTIBIOTIC PROPHYLAXIS
     Dosage: TOPICAL POWDER, 1 APPLICATION, ONCE
     Route: 061
     Dates: start: 20151008, end: 20151008
  54. VALIUM- DIAZEPAM [Concomitant]
     Route: 042
     Dates: start: 20151009, end: 20151011
  55. D5/0.45 % NACL + KCL 20 MEQ/L INFUSION [Concomitant]
     Dosage: 85 ML/HR
     Route: 042
     Dates: start: 20151014, end: 20151018
  56. VERSED- MIDAZOLAM [Concomitant]
     Indication: ANAESTHESIA
     Route: 048
     Dates: start: 20151014, end: 20151014
  57. BETADINE TOPICAL SOLUTION 3%- POVIDONE-IODINE [Concomitant]
     Indication: PROPHYLAXIS
     Dosage: 1 APPLICATION, ONCE
     Route: 061
     Dates: start: 20151014, end: 20151014
  58. ACETAMINOPHEN. [Concomitant]
     Active Substance: ACETAMINOPHEN
     Indication: PROCEDURAL PAIN
     Dosage: PRN
     Route: 048
     Dates: start: 20151019
  59. SCOPOLAMINE [Concomitant]
     Active Substance: SCOPOLAMINE
     Indication: PROCEDURAL NAUSEA
     Dosage: ONCE
     Route: 061
     Dates: start: 20151014, end: 20151014
  60. MORPHINE PCA [Concomitant]
     Dosage: PCA (21 DELIVERIES), 1MG/ML, PRN
     Route: 040
     Dates: start: 20151008, end: 20151009
  61. GABAPENTIN. [Concomitant]
     Active Substance: GABAPENTIN
     Indication: BACK PAIN
     Route: 048
     Dates: start: 20151019
  62. ROXICODONE- OXYCODONE [Concomitant]
     Indication: PROCEDURAL PAIN
     Dosage: 1 MG/ML, PRN
     Route: 048
     Dates: start: 20151015, end: 20151019
  63. RECOMBINANT- THROMBIN [Concomitant]
     Dosage: 20,000U TOPICAL SOLUTION, 1 APPLICATION, ONCE
     Route: 061
     Dates: start: 20151008, end: 20151008
  64. D5/0.45 % NACL + KCL 20 MEQ/L INFUSION [Concomitant]
     Indication: PROPHYLAXIS AGAINST DEHYDRATION
     Dosage: 85 ML/HR
     Route: 042
     Dates: start: 20151008, end: 20151012
  65. ANCEF- CEFAZOLIN [Concomitant]
     Route: 042
     Dates: start: 20151008, end: 20151012
  66. PHENYLEPHRINE [Concomitant]
     Active Substance: PHENYLEPHRINE\PHENYLEPHRINE HYDROCHLORIDE
     Indication: ANAESTHESIA
     Dosage: ONCE
     Route: 042
     Dates: start: 20151008, end: 20151008

REACTIONS (1)
  - Wound secretion [Recovered/Resolved]

NARRATIVE: CASE EVENT DATE: 20151014
